FAERS Safety Report 6453988-1 (Version None)
Quarter: 2009Q4

REPORT INFORMATION
  Report Type: 
  Country: None (occurrence: None)
  Receive Date: 20091124
  Receipt Date: 20091110
  Transmission Date: 20100525
  Serious: Yes (Other)
  Sender: FDA-Public Use
  Company Number: JP-MYLANLABS-2009S1019582

PATIENT
  Age: 84 Year
  Sex: Female

DRUGS (1)
  1. RISPERIDONE [Suspect]
     Indication: AGITATION

REACTIONS (1)
  - TORSADE DE POINTES [None]
